FAERS Safety Report 5610712-X (Version None)
Quarter: 2008Q1

REPORT INFORMATION
  Report Type: 
  Country: None (occurrence: None)
  Receive Date: 20080201
  Receipt Date: 20080129
  Transmission Date: 20080703
  Serious: Yes (Disabling, Other)
  Sender: FDA-Public Use
  Company Number: US-ALLERGAN-0801115US

PATIENT
  Sex: Female

DRUGS (1)
  1. BOTOX COSMETIC [Suspect]
     Indication: SKIN WRINKLING
     Dosage: 34 UNITS, SINGLE
     Route: 030
     Dates: start: 20080121, end: 20080121

REACTIONS (12)
  - AGITATION [None]
  - ANOREXIA [None]
  - DECREASED APPETITE [None]
  - FACIAL PAIN [None]
  - HEADACHE [None]
  - IMMOBILE [None]
  - INFLUENZA [None]
  - INSOMNIA [None]
  - NAUSEA [None]
  - NECK PAIN [None]
  - STOMACH DISCOMFORT [None]
  - WRONG TECHNIQUE IN DRUG USAGE PROCESS [None]
